FAERS Safety Report 9295725 (Version 1)
Quarter: 2013Q2

REPORT INFORMATION
  Report Type: Spontaneous
  Country: DE (occurrence: DE)
  Receive Date: 20130517
  Receipt Date: 20130517
  Transmission Date: 20140414
  Serious: Yes (Hospitalization, Other)
  Sender: FDA-Public Use
  Company Number: DE-PFIZER INC-2013122812

PATIENT
  Age: 72 Year
  Sex: Female

DRUGS (7)
  1. CITALOPRAM [Suspect]
     Indication: ANTIDEPRESSANT THERAPY
     Dosage: 20 MG/D
     Route: 048
     Dates: start: 20120201, end: 20120206
  2. CITALOPRAM [Suspect]
     Dosage: 30 MG/D
     Route: 048
     Dates: start: 20120207, end: 20120214
  3. DELIX [Suspect]
     Dosage: 5 MG, DAILY
     Route: 048
  4. OXAZEPAM [Concomitant]
     Indication: SLEEP DISORDER
     Dosage: 5 MG/D
     Dates: start: 20120203, end: 20120213
  5. ACETYLSALICYLIC ACID [Concomitant]
     Dosage: 100 MG/D
  6. VIGANTOLETTEN [Concomitant]
     Dosage: 1000 IU/D
  7. CALCIUM [Concomitant]
     Dosage: 500 MG/D

REACTIONS (7)
  - Hyponatraemia [Recovered/Resolved]
  - Pneumonia [Unknown]
  - Oxygen saturation decreased [Unknown]
  - Inflammation [Unknown]
  - Psychomotor skills impaired [Unknown]
  - Mutism [Unknown]
  - Apathy [Unknown]
